FAERS Safety Report 8604382-6 (Version None)
Quarter: 2012Q3

REPORT INFORMATION
  Report Type: 
  Country: None (occurrence: None)
  Receive Date: 20120820
  Receipt Date: 20120809
  Transmission Date: 20120928
  Serious: Yes (Hospitalization)
  Sender: FDA-Public Use
  Company Number: US-BAYER-2012-082604

PATIENT
  Age: 35 Year
  Sex: Female
  Weight: 99.1 kg

DRUGS (34)
  1. SYNTHROID [Concomitant]
     Dosage: 75 TAB
     Dates: start: 20051130
  2. TOPROL-XL [Concomitant]
     Dosage: 25 MG, UNK
     Dates: start: 20050916
  3. TOPROL-XL [Concomitant]
     Dosage: UNK
     Dates: start: 20051130
  4. AMPHETAMINE AND DEXTROAMPHETAMINE SALTS [Concomitant]
     Dosage: UNK
     Dates: start: 20051014
  5. ACETAMINOPHEN [Concomitant]
     Dosage: UNK
     Dates: start: 20051128
  6. CYTOMEL [Concomitant]
     Dosage: 5 ?G, UNK
     Dates: start: 20051123
  7. ADDERALL XR 10 [Concomitant]
     Dosage: UNK
     Dates: start: 20051130
  8. CLONAZEPAM [Concomitant]
     Dosage: UNK
     Dates: start: 20051003
  9. DETROL LA [Concomitant]
     Dosage: 4 MG, UNK
     Dates: start: 20051123
  10. YASMIN [Suspect]
     Dosage: DAILY
  11. CLARINEX [Concomitant]
     Dosage: 5 MG, UNK
     Dates: start: 20051025
  12. ADDERALL XR 10 [Concomitant]
     Dosage: UNK
     Dates: start: 20050916
  13. ADDERALL XR 10 [Concomitant]
     Dosage: 10 - 30 MG CAP
     Dates: start: 20050930
  14. CLONAZEPAM [Concomitant]
     Dosage: 1 MG, UNK
  15. TRAMADOL HYDROCHLORIDE [Concomitant]
     Dosage: UNK
     Dates: start: 20051128
  16. HYDROCODONE BITARTRATE + ACETAMINOPHEN [Concomitant]
     Dosage: UNK
     Dates: start: 20050830
  17. HYDROCODONE BITARTRATE + ACETAMINOPHEN [Concomitant]
     Dosage: UNK
     Dates: start: 20050916
  18. NAPROXEN [Concomitant]
     Dosage: 500 MG, UNK
     Dates: start: 20050916
  19. SKELAXIN [Concomitant]
     Dosage: 800 MG, UNK
     Dates: start: 20050916
  20. TOPROL-XL [Concomitant]
     Dosage: 25 MG, UNK
     Dates: start: 20051123
  21. ECONAZOLE NITRATE [Concomitant]
     Dosage: UNK
     Dates: start: 20051128
  22. GLUCOPHAGE [Concomitant]
     Dosage: 500 TAB
     Dates: start: 20051130
  23. GLUCOPHAGE [Concomitant]
     Dosage: 500 TAB
     Dates: start: 20051123
  24. DETROL LA [Concomitant]
     Dosage: UNK
     Dates: start: 20051130
  25. FLUCONAZOLE [Concomitant]
     Dosage: 100 MG, UNK
     Dates: start: 20051128
  26. CLARINEX [Concomitant]
     Dosage: 5 MG, UNK
     Dates: start: 20050530
  27. CYTOMEL [Concomitant]
     Dosage: UNK
     Dates: start: 20051130
  28. PROPOXYPHENE NAPSYLATE W/ ACETAMINOPHEN [Concomitant]
     Dosage: 100 TAB, UNK
     Dates: start: 20051006
  29. CLARINEX [Concomitant]
     Dosage: 5 MG, UNK
     Dates: start: 20051130
  30. SYNTHROID [Concomitant]
     Dosage: 75 TAB
     Dates: start: 20050916
  31. SYNTHROID [Concomitant]
     Dosage: 75 TAB
     Dates: start: 20051123
  32. GLUCOPHAGE [Concomitant]
     Dosage: 500 TAB
     Dates: start: 20050916
  33. CYTOMEL [Concomitant]
     Dosage: 5 ?G, UNK
     Dates: start: 20050916
  34. FLEXERIL [Concomitant]
     Dosage: UNK
     Dates: start: 20051130

REACTIONS (1)
  - PULMONARY EMBOLISM [None]
